FAERS Safety Report 20017444 (Version 1)
Quarter: 2021Q4

REPORT INFORMATION
  Report Type: Spontaneous
  Country: IT (occurrence: IT)
  Receive Date: 20211030
  Receipt Date: 20211030
  Transmission Date: 20220304
  Serious: Yes (Other)
  Sender: FDA-Public Use
  Company Number: None

PATIENT
  Age: 41 Year
  Weight: 69 kg

DRUGS (3)
  1. CARBOPLATIN [Suspect]
     Active Substance: CARBOPLATIN
     Indication: Ovarian cancer
     Dosage: 700 MG
     Route: 065
     Dates: start: 20210810
  2. PACLITAXEL [Suspect]
     Active Substance: PACLITAXEL
     Indication: Ovarian cancer
     Dosage: 290 MG
     Route: 065
     Dates: start: 20210810
  3. AVASTIN [Concomitant]
     Active Substance: BEVACIZUMAB
     Indication: Ovarian cancer
     Dosage: 1095 MG
     Dates: start: 20210810

REACTIONS (2)
  - Alanine aminotransferase increased [Unknown]
  - Aspartate aminotransferase increased [Unknown]

NARRATIVE: CASE EVENT DATE: 20211011
